FAERS Safety Report 4966039-2 (Version None)
Quarter: 2006Q2

REPORT INFORMATION
  Report Type: 
  Country: None (occurrence: None)
  Receive Date: 20060407
  Receipt Date: 20060327
  Transmission Date: 20061013
  Serious: Yes (Other)
  Sender: FDA-Public Use
  Company Number: GR-GLAXOSMITHKLINE-B0419250A

PATIENT
  Age: 55 Year
  Sex: Female

DRUGS (4)
  1. AMOXIL [Suspect]
     Indication: PROPHYLAXIS
     Dosage: 2G PER DAY
     Route: 048
     Dates: start: 20060308, end: 20060308
  2. LORNOXICAM [Suspect]
     Dosage: 16MG PER DAY
     Dates: start: 20060308, end: 20060308
  3. UNKNOWN DRUG [Concomitant]
     Dosage: 5.1MG PER DAY
  4. DEPON [Concomitant]
     Dosage: 1G PER DAY
     Route: 048

REACTIONS (3)
  - HYPERSENSITIVITY [None]
  - LARYNGEAL OEDEMA [None]
  - VULVAL OEDEMA [None]
